FAERS Safety Report 5468069-3 (Version None)
Quarter: 2007Q3

REPORT INFORMATION
  Report Type: 
  Country: None (occurrence: None)
  Receive Date: 20070820
  Receipt Date: 20070424
  Transmission Date: 20080115
  Serious: No
  Sender: FDA-Public Use
  Company Number: WAES 0703USA00206

PATIENT
  Sex: Male

DRUGS (2)
  1. JANUVIA [Suspect]
     Indication: BLOOD GLUCOSE
     Dosage: 100 MG/DAILY/PO
     Route: 048
  2. GLUCOPHAGE [Suspect]
     Indication: BLOOD GLUCOSE

REACTIONS (4)
  - PRURITUS [None]
  - RASH [None]
  - SKIN ULCER [None]
  - SWELLING [None]
